FAERS Safety Report 10046797 (Version 1)
Quarter: 2014Q1

REPORT INFORMATION
  Report Type: Spontaneous
  Country: US (occurrence: None)
  Receive Date: 20140328
  Receipt Date: 20140328
  Transmission Date: 20141002
  Serious: Yes (Disabling)
  Sender: FDA-Public Use
  Company Number: None

PATIENT
  Age: 62 Year
  Sex: Female
  Weight: 59.42 kg

DRUGS (1)
  1. BENICAR HCT [Suspect]
     Indication: HYPERTENSION
     Route: 048
     Dates: start: 20070424, end: 20140327

REACTIONS (5)
  - Diarrhoea [None]
  - Coeliac disease [None]
  - Oesophagitis [None]
  - Gastrooesophageal reflux disease [None]
  - Diverticulum intestinal [None]
